FAERS Safety Report 19689641 (Version 2)
Quarter: 2021Q4

REPORT INFORMATION
  Report Type: Spontaneous
  Country: DE (occurrence: DE)
  Receive Date: 20210812
  Receipt Date: 20211116
  Transmission Date: 20220304
  Serious: Yes (Death, Other)
  Sender: FDA-Public Use
  Company Number: DE-ASTELLAS-2021US017393

PATIENT
  Sex: Male

DRUGS (1)
  1. XTANDI [Suspect]
     Active Substance: ENZALUTAMIDE
     Indication: Hormone-refractory prostate cancer
     Dosage: 160 MG, ONCE DAILY (4X40 MG)
     Route: 048
     Dates: start: 20210413, end: 20210520

REACTIONS (4)
  - Malignant neoplasm progression [Fatal]
  - Anaemia [Recovering/Resolving]
  - General physical health deterioration [Unknown]
  - Angiopathy [Unknown]

NARRATIVE: CASE EVENT DATE: 20210503
